FAERS Safety Report 18096825 (Version 1)
Quarter: 2020Q3

REPORT INFORMATION
  Report Type: Spontaneous
  Country: US (occurrence: US)
  Receive Date: 20200730
  Receipt Date: 20200730
  Transmission Date: 20201103
  Serious: Yes (Other)
  Sender: FDA-Public Use
  Company Number: None

PATIENT
  Age: 46 Year
  Sex: Female
  Weight: 85.28 kg

DRUGS (5)
  1. AIRDUO RESPICLICK [Concomitant]
     Active Substance: FLUTICASONE PROPIONATE\SALMETEROL XINAFOATE
  2. ALBUTEROL INHALER [Suspect]
     Active Substance: ALBUTEROL
     Indication: ASTHMA
     Route: 055
     Dates: start: 20190423, end: 20190705
  3. PROAIR RESPICLICK [Suspect]
     Active Substance: ALBUTEROL SULFATE
  4. PROVENTIL [Suspect]
     Active Substance: ALBUTEROL
  5. PROAIR HFA [Suspect]
     Active Substance: ALBUTEROL SULFATE

REACTIONS (4)
  - Dyspnoea [None]
  - Insurance issue [None]
  - Product substitution issue [None]
  - Asthma [None]

NARRATIVE: CASE EVENT DATE: 20190423
